FAERS Safety Report 25385273 (Version 2)
Quarter: 2025Q3

REPORT INFORMATION
  Report Type: Report from Study
  Country: CA (occurrence: CA)
  Receive Date: 20250602
  Receipt Date: 20250723
  Transmission Date: 20251021
  Serious: Yes (Other)
  Sender: GILEAD
  Company Number: CA-GILEAD-2025-0715347

PATIENT
  Age: 47 Year
  Sex: Male

DRUGS (2)
  1. SOFOSBUVIR\VELPATASVIR [Suspect]
     Active Substance: SOFOSBUVIR\VELPATASVIR
     Indication: Hepatitis C
     Dosage: ONCE DAILY
     Route: 065
     Dates: start: 20240731
  2. SOFOSBUVIR\VELPATASVIR [Suspect]
     Active Substance: SOFOSBUVIR\VELPATASVIR
     Indication: Liver disorder

REACTIONS (4)
  - Hepatitis C [Unknown]
  - Genotype drug resistance test positive [Unknown]
  - Drug ineffective [Unknown]
  - Off label use [Unknown]
